FAERS Safety Report 14212854 (Version 3)
Quarter: 2017Q4

REPORT INFORMATION
  Report Type: Spontaneous
  Country: JP (occurrence: JP)
  Receive Date: 20171122
  Receipt Date: 20171204
  Transmission Date: 20180321
  Serious: Yes (Hospitalization)
  Sender: FDA-Public Use
  Company Number: JP-PFIZER INC-2017497571

PATIENT

DRUGS (8)
  1. CADUET [Suspect]
     Active Substance: AMLODIPINE BESYLATE\ATORVASTATIN CALCIUM
     Dosage: 1 DF, 1X/DAY
     Route: 048
     Dates: start: 201204
  2. CEROCRAL [Suspect]
     Active Substance: IFENPRODIL
     Dosage: 20 MG, 3X/DAY
     Route: 048
     Dates: start: 201204
  3. TWYNSTA [Suspect]
     Active Substance: AMLODIPINE BESYLATE\TELMISARTAN
     Dosage: 1 DF, 1X/DAY
     Route: 048
     Dates: start: 201204
  4. NESINA [Suspect]
     Active Substance: ALOGLIPTIN BENZOATE
     Dosage: 25 MG, 1X/DAY
     Route: 048
     Dates: start: 201204
  5. ZYLORIC [Suspect]
     Active Substance: ALLOPURINOL
     Dosage: 100 MG, 1X/DAY
     Route: 048
     Dates: start: 201204
  6. TAKEPRON [Suspect]
     Active Substance: LANSOPRAZOLE
     Dosage: 15 MG, 2X/DAY
     Route: 048
     Dates: start: 201204
  7. SEIBULE [Suspect]
     Active Substance: MIGLITOL
     Indication: DIABETES MELLITUS
     Dosage: 50 MG, 3X/DAY
     Route: 048
     Dates: start: 201204
  8. MAINTATE [Suspect]
     Active Substance: BISOPROLOL FUMARATE
     Dosage: 2.5 MG, 1X/DAY
     Route: 048
     Dates: start: 201204

REACTIONS (29)
  - Neck mass [Unknown]
  - Dysphonia [Unknown]
  - Insomnia [Unknown]
  - Mental disorder [Unknown]
  - Musculoskeletal stiffness [Unknown]
  - Mass [Unknown]
  - Headache [Unknown]
  - Visual acuity reduced [Unknown]
  - Bradyphrenia [Unknown]
  - Skin disorder [Unknown]
  - Eye pain [Unknown]
  - Hypoacusis [Unknown]
  - Chest pain [Unknown]
  - Pain [Unknown]
  - Pruritus generalised [Unknown]
  - Ear discomfort [Unknown]
  - Irregular breathing [Unknown]
  - Extrasystoles [Unknown]
  - Musculoskeletal pain [Unknown]
  - Head discomfort [Unknown]
  - Neck pain [Unknown]
  - Memory impairment [Unknown]
  - Decreased appetite [Unknown]
  - Nausea [Unknown]
  - Large intestine polyp [Unknown]
  - Dizziness [Unknown]
  - Judgement impaired [Unknown]
  - Somnolence [Unknown]
  - Movement disorder [Unknown]

NARRATIVE: CASE EVENT DATE: 201708
